FAERS Safety Report 12001008 (Version 3)
Quarter: 2017Q1

REPORT INFORMATION
  Report Type: Spontaneous
  Country: US (occurrence: US)
  Receive Date: 20160204
  Receipt Date: 20170105
  Transmission Date: 20170428
  Serious: No
  Sender: FDA-Public Use
  Company Number: US-GLAXOSMITHKLINE-US2016010513

PATIENT
  Sex: Female
  Weight: 64.4 kg

DRUGS (5)
  1. PROPRANOLOL [Concomitant]
     Active Substance: PROPRANOLOL HYDROCHLORIDE
     Indication: MIGRAINE PROPHYLAXIS
     Dosage: 200 MG TABLET, BID
  2. FOLIC ACID. [Concomitant]
     Active Substance: FOLIC ACID
     Indication: PREGNANCY
     Dosage: 2.2 MG, BID
     Dates: start: 20160126, end: 20160312
  3. PROMETRIUM [Concomitant]
     Active Substance: PROGESTERONE
     Indication: PREGNANCY
     Dosage: 200 MG, BID
     Dates: start: 20160126, end: 20160312
  4. ASPIRIN TABLETS [Suspect]
     Active Substance: ASPIRIN
     Indication: PREGNANCY
     Dosage: 81 MG, 1D
     Dates: start: 20160126, end: 20160312
  5. LAMOTRIGINE TABLET [Suspect]
     Active Substance: LAMOTRIGINE
     Indication: SIMPLE PARTIAL SEIZURES
     Dosage: 100 MG, BID
     Route: 048

REACTIONS (1)
  - Exposure during pregnancy [Unknown]
